FAERS Safety Report 12921814 (Version 1)
Quarter: 2016Q4

REPORT INFORMATION
  Report Type: Spontaneous
  Country: CA (occurrence: CA)
  Receive Date: 20161108
  Receipt Date: 20161108
  Transmission Date: 20170207
  Serious: Yes (Death)
  Sender: FDA-Public Use
  Company Number: CA-SA-2016SA201409

PATIENT
  Age: 68 Year
  Sex: Male

DRUGS (6)
  1. NEUPOGEN [Concomitant]
     Active Substance: FILGRASTIM
     Dosage: VIALS.
     Route: 065
  2. LEFLUNOMIDE. [Suspect]
     Active Substance: LEFLUNOMIDE
     Indication: RHEUMATOID ARTHRITIS
     Route: 048
  3. AMOXICILLIN. [Interacting]
     Active Substance: AMOXICILLIN
     Indication: SINUSITIS
     Route: 048
  4. MEROPENEM. [Concomitant]
     Active Substance: MEROPENEM
     Dosage: POWDER FOR?SOLUTION?INTRAVENOUS
     Route: 065
  5. TAZOBACTAM/PIPERACILLIN [Concomitant]
     Route: 065
  6. CHOLESTYRAMINE. [Concomitant]
     Active Substance: CHOLESTYRAMINE
     Route: 065

REACTIONS (6)
  - Toxicity to various agents [Fatal]
  - Odynophagia [Fatal]
  - Dialysis [Fatal]
  - Blood creatinine increased [Fatal]
  - Pancytopenia [Fatal]
  - Drug interaction [Fatal]
